FAERS Safety Report 8607303 (Version 2)
Quarter: 2013Q4

REPORT INFORMATION
  Report Type: Spontaneous
  Country: US (occurrence: US)
  Receive Date: 20120611
  Receipt Date: 20131011
  Transmission Date: 20140711
  Serious: Yes (Hospitalization, Disabling, Other)
  Sender: FDA-Public Use
  Company Number: US-ASTRAZENECA-2012SE35332

PATIENT
  Age: 39 Year
  Sex: Female

DRUGS (3)
  1. NEXIUM [Suspect]
     Indication: GASTROOESOPHAGEAL REFLUX DISEASE
     Dosage: DAILY
     Route: 048
  2. VITAMIN D [Concomitant]
  3. MORPHAN [Concomitant]
     Indication: HORMONE REPLACEMENT THERAPY

REACTIONS (9)
  - Fractured coccyx [Unknown]
  - Back injury [Unknown]
  - Limb injury [Unknown]
  - Neck injury [Unknown]
  - Osteoporosis [Unknown]
  - Bone density decreased [Unknown]
  - Upper limb fracture [Unknown]
  - Musculoskeletal discomfort [Unknown]
  - Arthropathy [Unknown]
